FAERS Safety Report 24692524 (Version 3)
Quarter: 2025Q1

REPORT INFORMATION
  Report Type: Spontaneous
  Country: GB (occurrence: GB)
  Receive Date: 20241203
  Receipt Date: 20250116
  Transmission Date: 20250408
  Serious: No
  Sender: PFIZER
  Company Number: GB-PFIZER INC-202400308770

PATIENT
  Sex: Female

DRUGS (1)
  1. MEDROXYPROGESTERONE\MEDROXYPROGESTERONE ACETATE [Suspect]
     Active Substance: MEDROXYPROGESTERONE\MEDROXYPROGESTERONE ACETATE

REACTIONS (2)
  - Injection site pain [Unknown]
  - Injection site bruising [Unknown]
